FAERS Safety Report 12772648 (Version 2)
Quarter: 2016Q4

REPORT INFORMATION
  Report Type: Report from Study
  Country: US (occurrence: US)
  Receive Date: 20160922
  Receipt Date: 20161003
  Transmission Date: 20170207
  Serious: Yes (Other)
  Sender: FDA-Public Use
  Company Number: US-BAUSCH-BL-2016-023264

PATIENT
  Age: 52 Year
  Sex: Male

DRUGS (2)
  1. DOXYCYCLINE. [Concomitant]
     Active Substance: DOXYCYCLINE
     Indication: CAT SCRATCH DISEASE
  2. GENTAMICIN. [Suspect]
     Active Substance: GENTAMICIN
     Indication: CAT SCRATCH DISEASE
     Route: 042

REACTIONS (1)
  - Nephropathy toxic [Unknown]
